FAERS Safety Report 20758109 (Version 1)
Quarter: 2022Q2

REPORT INFORMATION
  Report Type: Spontaneous
  Country: CN (occurrence: None)
  Receive Date: 20220427
  Receipt Date: 20220427
  Transmission Date: 20220721
  Serious: Yes (Other)
  Sender: FDA-Public Use
  Company Number: 2022A156885

PATIENT
  Age: 54 Year
  Sex: Male

DRUGS (2)
  1. GEFITINIB [Suspect]
     Active Substance: GEFITINIB
     Indication: Lung adenocarcinoma stage IV
     Route: 048
     Dates: start: 20161117, end: 20171004
  2. OSIMERTINIB [Suspect]
     Active Substance: OSIMERTINIB
     Indication: Lung adenocarcinoma stage IV
     Route: 048
     Dates: start: 20171004, end: 20180105

REACTIONS (4)
  - Malignant neoplasm progression [Recovering/Resolving]
  - Acquired gene mutation [Unknown]
  - Drug resistance [Unknown]
  - Malignant transformation [Recovering/Resolving]

NARRATIVE: CASE EVENT DATE: 20170903
